FAERS Safety Report 8327431-1 (Version None)
Quarter: 2012Q2

REPORT INFORMATION
  Report Type: 
  Country: None (occurrence: None)
  Receive Date: 20120419
  Receipt Date: 20120411
  Transmission Date: 20120825
  Serious: Yes (Hospitalization, Other)
  Sender: FDA-Public Use
  Company Number: 003-071

PATIENT
  Age: 4 Year
  Sex: Female
  Weight: 19.5 kg

DRUGS (2)
  1. CROFAB [Suspect]
  2. CROFAB [Suspect]
     Indication: SNAKE BITE
     Dosage: 10 VIALS TOTAL
     Dates: start: 20120326, end: 20120327

REACTIONS (3)
  - HYPOTENSION [None]
  - COMPARTMENT SYNDROME [None]
  - PULSE PRESSURE INCREASED [None]
